FAERS Safety Report 18853555 (Version 2)
Quarter: 2021Q1

REPORT INFORMATION
  Report Type: Spontaneous
  Country: HR (occurrence: HR)
  Receive Date: 20210205
  Receipt Date: 20210212
  Transmission Date: 20210420
  Serious: Yes (Life-Threatening, Other)
  Sender: FDA-Public Use
  Company Number: HR-US-PROVELL PHARMACEUTICALS LLC-E2B_90082196

PATIENT
  Age: 60 Year
  Sex: Female
  Weight: 65 kg

DRUGS (3)
  1. ISOPTO TEARS                       /01727601/ [Concomitant]
     Indication: DRY EYE
     Dosage: DOSAGE: 1?2XDAILY, AS NECESSARY
     Route: 047
     Dates: start: 2016
  2. EUTHYROX [Suspect]
     Active Substance: LEVOTHYROXINE SODIUM
     Dosage: DOSE INCREASED
     Route: 048
  3. EUTHYROX [Suspect]
     Active Substance: LEVOTHYROXINE SODIUM
     Indication: THYROIDECTOMY
     Dosage: 75 UG 1 TABLET EVERY DAY, 6 DAYS IN WEEK AND 50 UG 1 TABLET ONLY 1 DAY IN A WEEK
     Route: 048
     Dates: start: 20191214

REACTIONS (20)
  - Malaise [Recovering/Resolving]
  - Paraesthesia [Recovering/Resolving]
  - Dyspnoea [Recovering/Resolving]
  - Abdominal discomfort [Recovering/Resolving]
  - Heart rate irregular [Recovering/Resolving]
  - Tremor [Recovering/Resolving]
  - Asthenia [Recovering/Resolving]
  - Chest discomfort [Recovering/Resolving]
  - Burning sensation [Recovering/Resolving]
  - Muscle spasms [Recovering/Resolving]
  - Palpitations [Recovering/Resolving]
  - Blood glucose increased [Recovering/Resolving]
  - Heart rate increased [Recovering/Resolving]
  - Hypothyroidism [Unknown]
  - Chest pain [Recovering/Resolving]
  - Skin odour abnormal [Recovering/Resolving]
  - Headache [Recovering/Resolving]
  - Panic attack [Recovering/Resolving]
  - Hypertension [Recovering/Resolving]
  - Restlessness [Recovering/Resolving]

NARRATIVE: CASE EVENT DATE: 20201222
